FAERS Safety Report 7124246-7 (Version None)
Quarter: 2010Q4

REPORT INFORMATION
  Report Type: 
  Country: None (occurrence: None)
  Receive Date: 20101126
  Receipt Date: 20101115
  Transmission Date: 20110411
  Serious: Yes (Other)
  Sender: FDA-Public Use
  Company Number: GXKR2010FR12933

PATIENT
  Age: 60 Year
  Sex: Male

DRUGS (2)
  1. ENOXAPARIN (NGX) [Suspect]
     Dosage: 6000 IU, BID
     Route: 065
  2. HEPARIN [Suspect]
     Route: 065

REACTIONS (6)
  - ATRIAL FIBRILLATION [None]
  - CARDIOGENIC SHOCK [None]
  - CARDIOVERSION [None]
  - HAEMORRHAGE [None]
  - INTRA-AORTIC BALLOON PLACEMENT [None]
  - THROMBOCYTOPENIA [None]
